FAERS Safety Report 16749750 (Version 6)
Quarter: 2020Q1

REPORT INFORMATION
  Report Type: Report from Study
  Country: US (occurrence: US)
  Receive Date: 20190828
  Receipt Date: 20200220
  Transmission Date: 20200409
  Serious: Yes (Other)
  Sender: FDA-Public Use
  Company Number: US-TESAROUBC-2019-TSO02457-US

PATIENT
  Sex: Female

DRUGS (9)
  1. NIRAPARIB [Suspect]
     Active Substance: NIRAPARIB
     Dosage: 100MG ALTERNATING WITH 200MG
  2. TRAZODONE [Concomitant]
     Active Substance: TRAZODONE HYDROCHLORIDE
     Indication: INSOMNIA
     Dosage: UNK
  3. METOPROLOL. [Concomitant]
     Active Substance: METOPROLOL
     Indication: BLOOD PRESSURE MEASUREMENT
     Dosage: UNK
  4. NIRAPARIB [Suspect]
     Active Substance: NIRAPARIB
     Dosage: ONE CAPSULE EVERY OTHER DAY
  5. NIRAPARIB [Suspect]
     Active Substance: NIRAPARIB
     Dosage: 100MG QOD ALTERNATING WITH 200MG QOD
     Dates: start: 20190905
  6. NIRAPARIB [Suspect]
     Active Substance: NIRAPARIB
     Dosage: 100MG QOD ALTERNATING WITH 200MG QOD AT 10 PM WITHOUT FOOD
  7. LASIX [Suspect]
     Active Substance: FUROSEMIDE
     Indication: PRODUCT USED FOR UNKNOWN INDICATION
     Dosage: 20 MG, QD
  8. NIRAPARIB [Suspect]
     Active Substance: NIRAPARIB
     Dosage: 100 MG, QD
     Route: 048
     Dates: start: 20190820
  9. NIRAPARIB [Suspect]
     Active Substance: NIRAPARIB
     Indication: OVARIAN CANCER
     Dosage: 200 MG, QD
     Route: 048
     Dates: start: 20190702, end: 20190808

REACTIONS (14)
  - Cardiac disorder [Unknown]
  - Blood creatinine increased [Not Recovered/Not Resolved]
  - Blood pressure abnormal [Unknown]
  - Haemorrhage subcutaneous [Unknown]
  - Contusion [Not Recovered/Not Resolved]
  - Blood potassium increased [Recovered/Resolved]
  - Thrombocytopenia [Not Recovered/Not Resolved]
  - Blood urea increased [Recovering/Resolving]
  - Haematocrit decreased [Not Recovered/Not Resolved]
  - Renal disorder [Unknown]
  - Inappropriate schedule of product administration [Unknown]
  - Skin discolouration [Recovered/Resolved]
  - Haemoglobin decreased [Not Recovered/Not Resolved]
  - Expired product administered [Unknown]
